FAERS Safety Report 9888829 (Version 3)
Quarter: 2014Q1

REPORT INFORMATION
  Report Type: Spontaneous
  Country: JP (occurrence: JP)
  Receive Date: 20140211
  Receipt Date: 20140326
  Transmission Date: 20141002
  Serious: Yes (Death, Other)
  Sender: FDA-Public Use
  Company Number: JP-JNJFOC-20140203796

PATIENT
  Age: 55 Year
  Sex: Male

DRUGS (11)
  1. XEPLION [Suspect]
     Indication: SCHIZOPHRENIA
     Route: 030
     Dates: start: 20140109
  2. JANUVIA [Concomitant]
     Route: 048
     Dates: start: 2011
  3. THEODUR [Concomitant]
     Route: 048
     Dates: start: 2004
  4. LIMAS [Concomitant]
     Route: 048
     Dates: start: 2008
  5. TASMOLIN [Concomitant]
     Route: 048
     Dates: start: 2008
  6. ZYPREXA [Concomitant]
     Route: 048
     Dates: start: 201304
  7. ZYPREXA [Concomitant]
     Route: 048
     Dates: start: 201303
  8. ZYPREXA [Concomitant]
     Route: 048
     Dates: start: 201305
  9. ZYPREXA [Concomitant]
     Route: 048
     Dates: start: 201306
  10. ZYPREXA [Concomitant]
     Route: 048
     Dates: start: 20090321
  11. ZYPREXA [Concomitant]
     Route: 048
     Dates: start: 20130221

REACTIONS (4)
  - Death [Fatal]
  - Palpitations [Unknown]
  - Dyspnoea [Unknown]
  - Dysarthria [Unknown]
